FAERS Safety Report 6569351-9 (Version None)
Quarter: 2010Q1

REPORT INFORMATION
  Report Type: 
  Country: None (occurrence: None)
  Receive Date: 20100204
  Receipt Date: 20100128
  Transmission Date: 20100710
  Serious: Yes (Life-Threatening, Hospitalization, Other)
  Sender: FDA-Public Use
  Company Number: FR-BIOGENIDEC-2010BI000839

PATIENT
  Age: 25 Year
  Sex: Female

DRUGS (11)
  1. TYSABRI [Suspect]
     Indication: MULTIPLE SCLEROSIS
     Route: 042
     Dates: start: 20071004
  2. BACLOFENE [Concomitant]
     Indication: MUSCLE SPASTICITY
     Route: 048
     Dates: start: 20080926
  3. LEVOTONINE [Concomitant]
     Indication: CEREBELLAR ATAXIA
     Route: 048
     Dates: start: 20080111
  4. KARDEGIC [Concomitant]
     Indication: THROMBOSIS PROPHYLAXIS
     Route: 048
     Dates: start: 20010101
  5. COLCHICINE [Concomitant]
     Indication: ARTHRALGIA
     Route: 048
     Dates: start: 20010101
  6. PRIMIDONE [Concomitant]
     Indication: CEREBELLAR ATAXIA
     Route: 048
     Dates: start: 20081224
  7. CLONAZEPAM [Concomitant]
     Indication: CEREBELLAR ATAXIA
     Dates: start: 20010101
  8. ESCITALOPRAM [Concomitant]
     Indication: DEPRESSION
     Route: 048
     Dates: start: 20081224
  9. MACROGOL [Concomitant]
     Indication: CONSTIPATION
     Route: 048
     Dates: start: 20080801
  10. BISACODYL [Concomitant]
     Indication: CONSTIPATION
     Route: 048
     Dates: start: 20080801
  11. LAROXYL [Concomitant]

REACTIONS (2)
  - DIABETIC KETOACIDOSIS [None]
  - PROTEUS INFECTION [None]
